FAERS Safety Report 5146748-5 (Version None)
Quarter: 2006Q4

REPORT INFORMATION
  Report Type: 
  Country: None (occurrence: None)
  Receive Date: 20061109
  Receipt Date: 20060216
  Transmission Date: 20070319
  Serious: Yes (Hospitalization, Other)
  Sender: FDA-Public Use
  Company Number: BE-AMGEN-UK169621

PATIENT
  Sex: Male

DRUGS (7)
  1. NEULASTA [Suspect]
     Indication: CHEMOTHERAPY
     Route: 058
     Dates: start: 20050811, end: 20050811
  2. TRETINOIN [Suspect]
     Route: 048
     Dates: start: 20050803, end: 20051104
  3. IDARUBICIN HCL [Concomitant]
     Route: 042
     Dates: start: 20050804, end: 20050808
  4. ZOFRAN [Concomitant]
     Route: 042
     Dates: start: 20050803, end: 20050820
  5. ZANTAC [Concomitant]
     Route: 042
     Dates: start: 20050803, end: 20051104
  6. ZOVIRAX [Concomitant]
     Route: 042
     Dates: start: 20050803, end: 20050904
  7. NEUROBION [Concomitant]
     Route: 042
     Dates: start: 20050803, end: 20050904

REACTIONS (8)
  - BLOOD ALKALINE PHOSPHATASE INCREASED [None]
  - BLOOD LACTATE DEHYDROGENASE INCREASED [None]
  - BONE MARROW NECROSIS [None]
  - BONE PAIN [None]
  - DRUG INTERACTION [None]
  - FEBRILE NEUTROPENIA [None]
  - HEADACHE [None]
  - PAIN [None]
